FAERS Safety Report 26026972 (Version 2)
Quarter: 2025Q4

REPORT INFORMATION
  Report Type: Spontaneous
  Country: US (occurrence: US)
  Receive Date: 20251111
  Receipt Date: 20251114
  Transmission Date: 20260118
  Serious: Yes (Death, Other)
  Sender: IPSEN BIOPHARMACEUTICALS, INC.
  Company Number: US-IPSEN Group, Research and Development-2025-27497

PATIENT
  Age: 58 Year
  Sex: Male

DRUGS (2)
  1. TAZEMETOSTAT [Suspect]
     Active Substance: TAZEMETOSTAT
     Indication: Angiosarcoma
  2. TAZEMETOSTAT [Suspect]
     Active Substance: TAZEMETOSTAT
     Indication: Off label use

REACTIONS (5)
  - Death [Fatal]
  - Disease progression [Unknown]
  - Myalgia [Unknown]
  - Product use in unapproved indication [Unknown]
  - Pain [Unknown]
